FAERS Safety Report 7511559-X (Version None)
Quarter: 2011Q2

REPORT INFORMATION
  Report Type: 
  Country: None (occurrence: None)
  Receive Date: 20110531
  Receipt Date: 20110523
  Transmission Date: 20111010
  Serious: Yes (Hospitalization, Other)
  Sender: FDA-Public Use
  Company Number: US-BRISTOL-MYERS SQUIBB COMPANY-15769243

PATIENT
  Age: 94 Year
  Sex: Male

DRUGS (1)
  1. MEGESTROL ACETATE [Suspect]
     Indication: INCREASED APPETITE

REACTIONS (3)
  - AZOTAEMIA [None]
  - SECONDARY ADRENOCORTICAL INSUFFICIENCY [None]
  - RENAL FAILURE ACUTE [None]
